FAERS Safety Report 8304190-X (Version None)
Quarter: 2012Q2

REPORT INFORMATION
  Report Type: 
  Country: None (occurrence: None)
  Receive Date: 20120423
  Receipt Date: 20120412
  Transmission Date: 20120825
  Serious: Yes (Life-Threatening, Hospitalization)
  Sender: FDA-Public Use
  Company Number: JP-JNJFOC-20120403505

PATIENT
  Sex: Female
  Weight: 64 kg

DRUGS (4)
  1. REMICADE [Suspect]
     Indication: RHEUMATOID ARTHRITIS
     Route: 042
     Dates: start: 20061016
  2. METHOTREXATE [Suspect]
     Indication: RHEUMATOID ARTHRITIS
     Dosage: 4 TO 6 MG/WEEK
     Route: 048
     Dates: start: 20050119, end: 20110506
  3. REMICADE [Suspect]
     Dosage: 28 INFUSIONS ON UNSPECIFIED DATES
     Route: 042
     Dates: start: 20101209
  4. REMICADE [Suspect]
     Dosage: 30TH DOSE
     Route: 042
     Dates: start: 20110203

REACTIONS (4)
  - HYPERTENSION [None]
  - LYMPHOMA [None]
  - MALAISE [None]
  - RENAL IMPAIRMENT [None]
